FAERS Safety Report 9737076 (Version 1)
Quarter: 2013Q4

REPORT INFORMATION
  Report Type: Spontaneous
  Country: US (occurrence: US)
  Receive Date: 20131206
  Receipt Date: 20131206
  Transmission Date: 20140711
  Serious: Yes (Other)
  Sender: FDA-Public Use
  Company Number: US-TEVA-449136USA

PATIENT
  Age: 60 Year
  Sex: Male

DRUGS (1)
  1. DOXORUBICIN [Suspect]
     Indication: THERAPEUTIC EMBOLISATION
     Dosage: 200MICROM LC BEADS LOADED WITH 75MG DOXORUBICIN ELUTING BEADS INTO HIS LEFT HEPATIC ARTERY

REACTIONS (1)
  - Gastric ulcer haemorrhage [Recovering/Resolving]
